FAERS Safety Report 9681123 (Version 5)
Quarter: 2014Q1

REPORT INFORMATION
  Report Type: Spontaneous
  Country: NL (occurrence: NL)
  Receive Date: 20131111
  Receipt Date: 20140304
  Transmission Date: 20141002
  Serious: Yes (Hospitalization)
  Sender: FDA-Public Use
  Company Number: NL-NOVOPROD-392038

PATIENT
  Age: 40 Year
  Sex: Female
  Weight: 105 kg

DRUGS (3)
  1. NOVOMIX 30 FLEXPEN [Suspect]
     Indication: DIABETES MELLITUS
     Dosage: 20 IU, BID
     Route: 058
     Dates: start: 20131018, end: 20131028
  2. NOVOMIX 30 FLEXPEN [Suspect]
     Dosage: UNK
     Route: 058
     Dates: start: 20130527, end: 20131018
  3. METFORMIN [Concomitant]
     Indication: DIABETES MELLITUS

REACTIONS (4)
  - Dehydration [Recovering/Resolving]
  - Headache [Recovering/Resolving]
  - Hyperglycaemia [Recovering/Resolving]
  - Product quality issue [Recovering/Resolving]
